FAERS Safety Report 5236479-5 (Version None)
Quarter: 2007Q1

REPORT INFORMATION
  Report Type: 
  Country: None (occurrence: None)
  Receive Date: 20061208
  Receipt Date: 20060607
  Transmission Date: 20070707
  Serious: Yes (Other)
  Sender: FDA-Public Use
  Company Number: 2006UW11985

PATIENT
  Age: 57 Year
  Sex: Male
  Weight: 88.45 kg

DRUGS (8)
  1. CRESTOR [Suspect]
     Indication: BLOOD CHOLESTEROL INCREASED
     Dosage: 5 MG PO
     Route: 048
  2. CALCIUM [Concomitant]
  3. VITAMIN E [Concomitant]
  4. ASCORBIC ACID [Concomitant]
  5. FISH OIL [Concomitant]
  6. ZINC [Concomitant]
  7. NIACIN [Concomitant]
  8. VITAMIN B COMPLEX CAP [Concomitant]

REACTIONS (2)
  - ERECTILE DYSFUNCTION [None]
  - MYALGIA [None]
